FAERS Safety Report 22394455 (Version 1)
Quarter: 2023Q2

REPORT INFORMATION
  Report Type: Spontaneous
  Country: US (occurrence: US)
  Receive Date: 20230601
  Receipt Date: 20230601
  Transmission Date: 20230721
  Serious: Yes (Other)
  Sender: FDA-Public Use
  Company Number: US-FreseniusKabi-FK202307205

PATIENT
  Age: 65 Year
  Sex: Female

DRUGS (3)
  1. LIDOCAINE [Suspect]
     Active Substance: LIDOCAINE
     Indication: Anaesthesia
     Dosage: 2% LIDOCAINE 5ML
     Route: 056
  2. BUPIVACAINE [Suspect]
     Active Substance: BUPIVACAINE
     Indication: Anaesthesia
     Dosage: 0.75% BUPIVACAINE 5ML
     Route: 042
  3. HYALURONIDASE [Suspect]
     Active Substance: HYALURONIDASE
     Indication: Anaesthesia

REACTIONS (1)
  - Purtscher retinopathy [Recovered/Resolved]
